FAERS Safety Report 5011039-X (Version None)
Quarter: 2006Q2

REPORT INFORMATION
  Report Type: 
  Country: None (occurrence: None)
  Receive Date: 20060525
  Receipt Date: 20031204
  Transmission Date: 20061013
  Serious: No
  Sender: FDA-Public Use
  Company Number: US-BRISTOL-MYERS SQUIBB COMPANY-12458204

PATIENT
  Sex: Female

DRUGS (1)
  1. CORGARD [Suspect]
     Route: 048

REACTIONS (1)
  - DRUG INEFFECTIVE [None]
